FAERS Safety Report 4882327-2 (Version None)
Quarter: 2006Q1

REPORT INFORMATION
  Report Type: 
  Country: None (occurrence: None)
  Receive Date: 20060117
  Receipt Date: 20051118
  Transmission Date: 20060701
  Serious: Yes (Hospitalization)
  Sender: FDA-Public Use
  Company Number: CH-ROCHE-425599

PATIENT
  Age: 16 Year
  Sex: Female

DRUGS (1)
  1. ROACCUTAN [Suspect]
     Route: 048
     Dates: start: 20050119, end: 20050413

REACTIONS (5)
  - ABNORMAL BEHAVIOUR [None]
  - ANXIETY [None]
  - BLOOD CHOLESTEROL INCREASED [None]
  - PHARYNGITIS [None]
  - SUICIDAL IDEATION [None]
